FAERS Safety Report 5312583-8 (Version None)
Quarter: 2007Q2

REPORT INFORMATION
  Report Type: 
  Country: None (occurrence: None)
  Receive Date: 20070430
  Receipt Date: 20070130
  Transmission Date: 20071010
  Serious: No
  Sender: FDA-Public Use
  Company Number: 2007UW01853

PATIENT
  Age: 85 Year
  Sex: Female
  Weight: 68 kg

DRUGS (5)
  1. NEXIUM [Suspect]
     Indication: GASTROOESOPHAGEAL REFLUX DISEASE
     Route: 048
     Dates: start: 20060101
  2. TIAZAC [Concomitant]
  3. VITAMINS [Concomitant]
     Route: 048
  4. ASPIRIN [Concomitant]
     Route: 048
  5. CALCIUM CHLORIDE [Concomitant]

REACTIONS (2)
  - DIARRHOEA [None]
  - INCONTINENCE [None]
